FAERS Safety Report 10690416 (Version 1)
Quarter: 2015Q1

REPORT INFORMATION
  Report Type: Spontaneous
  Country: US (occurrence: None)
  Receive Date: 20150102
  Receipt Date: 20150102
  Transmission Date: 20150720
  Serious: Yes (Hospitalization)
  Sender: FDA-Public Use
  Company Number: None

PATIENT
  Age: 52 Year
  Sex: Male
  Weight: 80.7 kg

DRUGS (4)
  1. PROPOFOL. [Suspect]
     Active Substance: PROPOFOL
     Indication: ANAESTHESIA
     Route: 042
     Dates: start: 20141003
  2. ROPIVACAINE [Suspect]
     Active Substance: ROPIVACAINE
     Indication: ANAESTHESIA
     Route: 042
     Dates: start: 20141003
  3. ROPIVACAINE [Suspect]
     Active Substance: ROPIVACAINE
     Indication: SHOULDER OPERATION
     Route: 042
     Dates: start: 20141003
  4. PROPOFOL. [Suspect]
     Active Substance: PROPOFOL
     Indication: SHOULDER OPERATION
     Route: 042
     Dates: start: 20141003

REACTIONS (3)
  - Oxygen saturation decreased [None]
  - Sleep apnoea syndrome [None]
  - Respiratory depression [None]

NARRATIVE: CASE EVENT DATE: 20141003
